FAERS Safety Report 7061108-8 (Version None)
Quarter: 2010Q4

REPORT INFORMATION
  Report Type: 
  Country: None (occurrence: None)
  Receive Date: 20101026
  Receipt Date: 20101020
  Transmission Date: 20110411
  Serious: Yes (Other)
  Sender: FDA-Public Use
  Company Number: US-PFIZER INC-2010134433

PATIENT
  Sex: Male
  Weight: 113.39 kg

DRUGS (8)
  1. LOPID [Suspect]
     Indication: BLOOD CHOLESTEROL INCREASED
     Dosage: FREQUENCY: 2X/DAY,
     Route: 048
     Dates: start: 20100101
  2. ATENOLOL [Concomitant]
     Dosage: 100 MG, UNK
  3. LISINOPRIL [Concomitant]
     Dosage: UNK
  4. HYDROCHLOROTHIAZIDE [Concomitant]
     Dosage: UNK
  5. XANAX [Concomitant]
     Indication: ANXIETY
     Dosage: UNK
  6. SUCRALFATE [Concomitant]
     Indication: ABDOMINAL DISCOMFORT
     Dosage: 1 G, 3X/DAY
  7. FISH OIL [Concomitant]
     Dosage: 1000 MG, 4X/DAY
  8. ASPIRIN [Concomitant]
     Dosage: 325 MG, 1X/DAY

REACTIONS (6)
  - BACK PAIN [None]
  - BLOOD TRIGLYCERIDES INCREASED [None]
  - CORONARY ARTERY DISEASE [None]
  - GROIN PAIN [None]
  - HERNIA [None]
  - SOFT TISSUE INJURY [None]
